FAERS Safety Report 16723183 (Version 1)
Quarter: 2019Q3

REPORT INFORMATION
  Report Type: Spontaneous
  Country: GB (occurrence: GB)
  Receive Date: 20190821
  Receipt Date: 20190821
  Transmission Date: 20191005
  Serious: Yes (Other)
  Sender: FDA-Public Use
  Company Number: GB-SA-2019SA229591

PATIENT
  Age: 32 Year
  Sex: Female
  Weight: 57 kg

DRUGS (9)
  1. CLENIL MODULITE [Concomitant]
     Active Substance: BECLOMETHASONE DIPROPIONATE
  2. OMEPRAZOLE. [Concomitant]
     Active Substance: OMEPRAZOLE
  3. AVAMYS [Concomitant]
     Active Substance: FLUTICASONE FUROATE
  4. METOJECT [Concomitant]
     Active Substance: METHOTREXATE SODIUM
  5. SARILUMAB [Suspect]
     Active Substance: SARILUMAB
     Indication: PALINDROMIC RHEUMATISM
     Dosage: 200 MG, QOW
     Route: 058
     Dates: start: 20190425
  6. ETORICOXIB. [Concomitant]
     Active Substance: ETORICOXIB
  7. ZINERYT [Concomitant]
  8. VENTOLIN [Concomitant]
     Active Substance: ALBUTEROL SULFATE
  9. FOLIC ACID. [Concomitant]
     Active Substance: FOLIC ACID

REACTIONS (1)
  - Hypokalaemia [Not Recovered/Not Resolved]

NARRATIVE: CASE EVENT DATE: 20190524
